FAERS Safety Report 7814196-2 (Version None)
Quarter: 2011Q4

REPORT INFORMATION
  Report Type: 
  Country: None (occurrence: None)
  Receive Date: 20111014
  Receipt Date: 20111011
  Transmission Date: 20120403
  Serious: Yes (Other)
  Sender: FDA-Public Use
  Company Number: US-BRISTOL-MYERS SQUIBB COMPANY-16126161

PATIENT
  Age: 14 Year
  Sex: Male
  Weight: 59 kg

DRUGS (7)
  1. CLARITIN [Concomitant]
     Indication: SEASONAL ALLERGY
  2. ABILIFY [Suspect]
     Indication: OBSESSIVE-COMPULSIVE DISORDER
     Dosage: STARTED OVER A YR AGO INT + REST PRESCRIPTION NO:787157 TAKEN HALF TABS OF 15MG USE BY DT:17JL12
     Route: 048
  3. ABILIFY [Suspect]
     Indication: BIPOLAR DISORDER
     Dosage: STARTED OVER A YR AGO INT + REST PRESCRIPTION NO:787157 TAKEN HALF TABS OF 15MG USE BY DT:17JL12
     Route: 048
  4. LITHIUM [Suspect]
     Dosage: A FEW WEEKS AGO
  5. ALBUTEROL [Concomitant]
     Indication: ASTHMA
  6. ABILIFY [Suspect]
     Indication: MANIA
     Dosage: STARTED OVER A YR AGO INT + REST PRESCRIPTION NO:787157 TAKEN HALF TABS OF 15MG USE BY DT:17JL12
     Route: 048
  7. ABILIFY [Suspect]
     Indication: ATTENTION DEFICIT/HYPERACTIVITY DISORDER
     Dosage: STARTED OVER A YR AGO INT + REST PRESCRIPTION NO:787157 TAKEN HALF TABS OF 15MG USE BY DT:17JL12
     Route: 048

REACTIONS (5)
  - AGGRESSION [None]
  - PARANOIA [None]
  - FEAR [None]
  - TACHYPHRENIA [None]
  - MUSCULOSKELETAL PAIN [None]
